FAERS Safety Report 11836403 (Version 1)
Quarter: 2015Q4

REPORT INFORMATION
  Report Type: Spontaneous
  Country: US (occurrence: None)
  Receive Date: 20151214
  Receipt Date: 20151214
  Transmission Date: 20160305
  Serious: Yes (Other)
  Sender: FDA-Public Use
  Company Number: None

PATIENT
  Age: 47 Year
  Sex: Female

DRUGS (1)
  1. HUMIRA [Suspect]
     Active Substance: ADALIMUMAB
     Indication: RHEUMATOID ARTHRITIS
     Dosage: Q2WKS
     Route: 058
     Dates: start: 20151121

REACTIONS (3)
  - Nasopharyngitis [None]
  - Malaise [None]
  - Bronchitis [None]

NARRATIVE: CASE EVENT DATE: 20151201
